FAERS Safety Report 8616832-X (Version None)
Quarter: 2012Q3

REPORT INFORMATION
  Report Type: 
  Country: None (occurrence: None)
  Receive Date: 20120823
  Receipt Date: 20120808
  Transmission Date: 20120928
  Serious: No
  Sender: FDA-Public Use
  Company Number: US-009507513-1208USA004119

PATIENT

DRUGS (4)
  1. DIPROLENE [Suspect]
     Indication: PSORIASIS
     Dosage: UNK
     Route: 003
     Dates: start: 19820801
  2. DIPROLENE AF [Suspect]
     Indication: PSORIASIS
     Dosage: UNK, PRN
     Route: 003
     Dates: start: 19820801
  3. EFFEXOR [Concomitant]
  4. OMPERAZOL DURA [Concomitant]

REACTIONS (3)
  - BORDERLINE MENTAL IMPAIRMENT [None]
  - ADRENAL CYST [None]
  - DRUG ADMINISTERED TO PATIENT OF INAPPROPRIATE AGE [None]
